FAERS Safety Report 5487858-2 (Version None)
Quarter: 2007Q4

REPORT INFORMATION
  Report Type: 
  Country: None (occurrence: None)
  Receive Date: 20071017
  Receipt Date: 20071008
  Transmission Date: 20080405
  Serious: Yes (Other)
  Sender: FDA-Public Use
  Company Number: US-TYCO HEALTHCARE/MALLINCKRODT-T200701170

PATIENT

DRUGS (3)
  1. METHADONE HCL [Suspect]
     Indication: NEURALGIA
     Dosage: 2.5 TABLETS IN THE AM AND 2 TABLETS IN THE PM
     Route: 048
     Dates: start: 19820101, end: 20070901
  2. AVINZA [Concomitant]
     Indication: NEURALGIA
     Dates: start: 20070901
  3. XANAX [Concomitant]
     Indication: ANXIETY
     Dosage: UNK, TID
     Route: 048

REACTIONS (23)
  - AGITATION [None]
  - AMNESIA [None]
  - ARTHRALGIA [None]
  - ASTHENIA [None]
  - CLAUSTROPHOBIA [None]
  - COUGH [None]
  - DRUG INEFFECTIVE [None]
  - DYSGEUSIA [None]
  - DYSPEPSIA [None]
  - EYE DISORDER [None]
  - FORMICATION [None]
  - HALLUCINATION [None]
  - HOT FLUSH [None]
  - HYPERHIDROSIS [None]
  - HYPOAESTHESIA [None]
  - INCOHERENT [None]
  - MYDRIASIS [None]
  - NAUSEA [None]
  - PARANOIA [None]
  - THROAT IRRITATION [None]
  - TINNITUS [None]
  - TONGUE HAEMORRHAGE [None]
  - VISUAL DISTURBANCE [None]
